FAERS Safety Report 21020203 (Version 5)
Quarter: 2024Q4

REPORT INFORMATION
  Report Type: Report from Study
  Country: AU (occurrence: AU)
  Receive Date: 20220628
  Receipt Date: 20241024
  Transmission Date: 20250115
  Serious: No
  Sender: ROCHE
  Company Number: AU-ROCHE-3126269

PATIENT
  Age: 65 Year
  Sex: Female

DRUGS (1)
  1. OCREVUS [Suspect]
     Active Substance: OCRELIZUMAB
     Indication: Relapsing-remitting multiple sclerosis
     Dosage: INFUSION 7 : 14/DEC/2021?INFUSION 8 : 28/OCT/2022, YES
     Route: 041
     Dates: start: 20180116

REACTIONS (4)
  - COVID-19 [Recovered/Resolved]
  - B-lymphocyte count decreased [Unknown]
  - Off label use [Unknown]
  - Immunodeficiency [Unknown]

NARRATIVE: CASE EVENT DATE: 20220618
